FAERS Safety Report 4745638-7 (Version None)
Quarter: 2005Q3

REPORT INFORMATION
  Report Type: 
  Country: None (occurrence: None)
  Receive Date: 20050815
  Receipt Date: 20050728
  Transmission Date: 20060218
  Serious: Yes (Other)
  Sender: FDA-Public Use
  Company Number: 215753

PATIENT
  Age: 67 Year
  Sex: Female

DRUGS (2)
  1. MABTHERA                        (RITUXIMAB) [Suspect]
     Indication: RHEUMATOID ARTHRITIS
     Dosage: 1000 MG, INTRAVENOUS
     Route: 042
     Dates: start: 20040201, end: 20040201
  2. METHOTREXATE [Concomitant]

REACTIONS (2)
  - CERVIX CARCINOMA [None]
  - NAUSEA [None]
